FAERS Safety Report 4428329-1 (Version None)
Quarter: 2004Q3

REPORT INFORMATION
  Report Type: 
  Country: None (occurrence: None)
  Receive Date: 20040813
  Receipt Date: 20040806
  Transmission Date: 20050211
  Serious: Yes (Death, Life-Threatening, Hospitalization, Other)
  Sender: FDA-Public Use
  Company Number: 2004-06-1943

PATIENT
  Age: 55 Year
  Sex: Female
  Weight: 55 kg

DRUGS (8)
  1. VIRAFERONPEG [Suspect]
     Indication: FIBROSIS
     Dosage: 1.5 UG/KG QWK SUBCUTANEO
     Route: 058
     Dates: start: 20040406, end: 20040615
  2. VIRAFERONPEG [Suspect]
     Indication: HEPATITIS C
     Dosage: 1.5 UG/KG QWK SUBCUTANEO
     Route: 058
     Dates: start: 20040406, end: 20040615
  3. REBETOL [Suspect]
     Indication: HEPATITIS C
     Dosage: 10.6MG/KG ORAL
     Route: 048
     Dates: start: 20040406, end: 20040615
  4. ALDACTONE [Concomitant]
  5. ZYRTEC [Concomitant]
  6. DAFALGAN TABLETS [Concomitant]
  7. LASIX [Concomitant]
  8. OMEPRAZOLE [Concomitant]

REACTIONS (9)
  - ALCOHOL POISONING [None]
  - BLOOD SODIUM DECREASED [None]
  - CYTOMEGALOVIRUS INFECTION [None]
  - EPSTEIN-BARR VIRUS INFECTION [None]
  - HEPATIC CIRRHOSIS [None]
  - HEPATIC ENCEPHALOPATHY [None]
  - HEPATOCELLULAR DAMAGE [None]
  - MUMPS [None]
  - VIRAL INFECTION [None]
